FAERS Safety Report 6555949-0 (Version None)
Quarter: 2010Q1

REPORT INFORMATION
  Report Type: 
  Country: None (occurrence: None)
  Receive Date: 20100128
  Receipt Date: 20100121
  Transmission Date: 20100710
  Serious: Yes (Hospitalization, Other)
  Sender: FDA-Public Use
  Company Number: GB-ABBOTT-04P-167-0279716-00

PATIENT
  Age: 54 Year
  Sex: Male
  Weight: 87 kg

DRUGS (5)
  1. HUMIRA [Suspect]
     Indication: SERONEGATIVE ARTHRITIS
     Route: 058
     Dates: start: 20040716, end: 20050620
  2. CO-CODAMOL [Concomitant]
     Indication: ARTHRITIS
     Route: 048
  3. ATARAX [Concomitant]
     Indication: DRUG USE FOR UNKNOWN INDICATION
     Route: 065
  4. FUCIBET [Concomitant]
     Indication: ECZEMA
  5. DIPROBASE [Concomitant]
     Indication: ECZEMA

REACTIONS (8)
  - CELLULITIS [None]
  - CONDITION AGGRAVATED [None]
  - ECZEMA [None]
  - EOSINOPHILIA [None]
  - INJECTION SITE ERYTHEMA [None]
  - INJECTION SITE PRURITUS [None]
  - INJECTION SITE REACTION [None]
  - RASH ERYTHEMATOUS [None]
